FAERS Safety Report 14339983 (Version 1)
Quarter: 2017Q4

REPORT INFORMATION
  Report Type: Spontaneous
  Country: US (occurrence: US)
  Receive Date: 20171231
  Receipt Date: 20171231
  Transmission Date: 20180321
  Serious: Yes (Hospitalization, Other)
  Sender: FDA-Public Use
  Company Number: US-TEVA-2017-US-839728

PATIENT
  Age: 30 Year
  Sex: Female

DRUGS (8)
  1. VENLAFAXINE [Suspect]
     Active Substance: VENLAFAXINE HYDROCHLORIDE
     Route: 050
  2. VENLAFAXINE [Suspect]
     Active Substance: VENLAFAXINE HYDROCHLORIDE
     Dosage: 75 MILLIGRAM DAILY;
     Route: 048
  3. VENLAFAXINE [Suspect]
     Active Substance: VENLAFAXINE HYDROCHLORIDE
     Route: 048
  4. SODIUM CHLORIDE. [Concomitant]
     Active Substance: SODIUM CHLORIDE
     Route: 048
  5. VENLAFAXINE [Suspect]
     Active Substance: VENLAFAXINE HYDROCHLORIDE
     Dosage: 150 MILLIGRAM DAILY;
     Route: 048
  6. QUETIAPINE. [Concomitant]
     Active Substance: QUETIAPINE
     Indication: HYPONATRAEMIA
     Dosage: 150 MG EVERY NIGHT AT BEDTIME
     Route: 048
  7. SODIUM CHLORIDE. [Concomitant]
     Active Substance: SODIUM CHLORIDE
     Route: 048
  8. VENLAFAXINE [Suspect]
     Active Substance: VENLAFAXINE HYDROCHLORIDE
     Dosage: 75 MILLIGRAM DAILY;  IMMEDIATE RELEASE
     Route: 048

REACTIONS (6)
  - Hyponatraemia [Recovered/Resolved]
  - Agitation [Recovering/Resolving]
  - Drug withdrawal syndrome [Recovering/Resolving]
  - Abnormal behaviour [Recovering/Resolving]
  - Intentional self-injury [Recovered/Resolved]
  - Confusional state [Recovering/Resolving]
